FAERS Safety Report 10281080 (Version 1)
Quarter: 2014Q3

REPORT INFORMATION
  Report Type: Spontaneous
  Country: US (occurrence: None)
  Receive Date: 20140702
  Receipt Date: 20140702
  Transmission Date: 20150326
  Serious: Yes (Hospitalization, Disabling)
  Sender: FDA-Public Use
  Company Number: None

PATIENT
  Age: 22 Year
  Sex: Female
  Weight: 97.52 kg

DRUGS (7)
  1. ABILIFY [Suspect]
     Active Substance: ARIPIPRAZOLE
  2. HYDROXYZINE PAM 25 MG [Suspect]
     Active Substance: HYDROXYZINE PAMOATE
  3. RISPERDAL [Suspect]
     Active Substance: RISPERIDONE
  4. FLUOXETINE HCL [Concomitant]
     Active Substance: FLUOXETINE HYDROCHLORIDE
  5. MIRTAZAPINE. [Suspect]
     Active Substance: MIRTAZAPINE
     Indication: DEPRESSION
     Route: 048
  6. CITALOPRAM [Concomitant]
     Active Substance: CITALOPRAM HYDROBROMIDE
  7. MIRTAZAPINE. [Suspect]
     Active Substance: MIRTAZAPINE
     Indication: SCHIZOPHRENIA
     Route: 048

REACTIONS (6)
  - Vision blurred [None]
  - Back pain [None]
  - Weight increased [None]
  - Breast enlargement [None]
  - Blindness [None]
  - Headache [None]

NARRATIVE: CASE EVENT DATE: 201206
